FAERS Safety Report 11283031 (Version 1)
Quarter: 2015Q3

REPORT INFORMATION
  Report Type: Spontaneous
  Country: CA (occurrence: None)
  Receive Date: 20150716
  Receipt Date: 20150716
  Transmission Date: 20151125
  Serious: Yes (Hospitalization, Other)
  Sender: FDA-Public Use
  Company Number: 2015-11741

PATIENT
  Age: 79 Year
  Sex: Male

DRUGS (1)
  1. EYLEA [Suspect]
     Active Substance: AFLIBERCEPT
     Indication: DIABETIC RETINAL OEDEMA
     Route: 031

REACTIONS (2)
  - Dyspnoea [None]
  - Lung disorder [None]

NARRATIVE: CASE EVENT DATE: 20150708
